FAERS Safety Report 13602524 (Version 4)
Quarter: 2017Q3

REPORT INFORMATION
  Report Type: Report from Study
  Country: CA (occurrence: CA)
  Receive Date: 20170601
  Receipt Date: 20170811
  Transmission Date: 20171127
  Serious: Yes (Hospitalization)
  Sender: FDA-Public Use
  Company Number: CA-VERTEX PHARMACEUTICALS-2017-002395

PATIENT
  Age: 12 Year
  Sex: Female

DRUGS (21)
  1. DOMPERIDONE [Concomitant]
     Active Substance: DOMPERIDONE
     Dosage: 1 DF, BID
     Dates: start: 20170510
  2. CREON [Concomitant]
     Active Substance: PANCRELIPASE AMYLASE\PANCRELIPASE LIPASE\PANCRELIPASE PROTEASE
     Dosage: 4 CAPSULE(S) 03-4H PRN
  3. PULMOZYME [Concomitant]
     Active Substance: DORNASE ALFA
     Dosage: 2.5 ML, BID
  4. VITAMIN D [Concomitant]
     Active Substance: CHOLECALCIFEROL
     Dosage: 7 DF, QD
     Dates: start: 20170526
  5. ZENHALE [Concomitant]
     Active Substance: FORMOTEROL FUMARATE\MOMETASONE FUROATE
     Dosage: 2 DF, BID
  6. TOBI [Concomitant]
     Active Substance: TOBRAMYCIN
     Dosage: 300 MG, BID
     Route: 055
  7. URSO [Concomitant]
     Active Substance: URSODIOL
     Dosage: 1 DF, BID
     Dates: start: 20161121
  8. XOLAIR [Concomitant]
     Active Substance: OMALIZUMAB
     Dosage: 300 MG, Q2W
     Dates: start: 20170411
  9. OXYGEN. [Concomitant]
     Active Substance: OXYGEN
     Dosage: 1-2 1/MIN VIA NASAL PRONGS OVERNIGHT
     Route: 045
  10. ORKAMBI [Suspect]
     Active Substance: IVACAFTOR\LUMACAFTOR
     Indication: CYSTIC FIBROSIS
     Dosage: 2 DF (200-125 MG EACH), BID
     Route: 048
     Dates: start: 20170313, end: 201705
  11. HYPERTONIC SALINE SOLUTION [Concomitant]
     Active Substance: SODIUM CHLORIDE
     Dosage: 4 ML, BID
     Dates: start: 20160720
  12. LAX-A-DAY [Concomitant]
     Dosage: 17 G, QD
     Dates: start: 20170209
  13. PREDNISONE. [Concomitant]
     Active Substance: PREDNISONE
     Dosage: 2 DF, QD
  14. VENTOLIN HFA [Concomitant]
     Active Substance: ALBUTEROL SULFATE
     Dosage: 2 INHALATION(S), 04-6H PRN
     Route: 055
  15. MCT OIL [Concomitant]
     Dosage: 15 ML, BID
     Dates: start: 20161006
  16. PEPTAMEN [Concomitant]
     Dosage: 5 TETRAS VIA GASTRO-JEJEUNOSTOMY OVERNIGHT AS DIRECTED
  17. CREON 25 [Concomitant]
     Dosage: 2 CAPSULE(S). 03-4H
     Dates: start: 20170209
  18. COLYMYCIN [Concomitant]
     Dosage: 75 MG, BID
     Dates: start: 20160720
  19. NORMAL SALINE [Concomitant]
     Active Substance: SODIUM CHLORIDE
     Dosage: 3 ML, BID
     Dates: start: 20160720
  20. AVAMYS [Concomitant]
     Active Substance: FLUTICASONE FUROATE
     Dosage: 1 DF, QD
     Dates: start: 20161006
  21. PREVACID [Concomitant]
     Active Substance: LANSOPRAZOLE
     Dosage: 1 DF, QD
     Dates: start: 20161006

REACTIONS (4)
  - Infective pulmonary exacerbation of cystic fibrosis [Recovering/Resolving]
  - Increased bronchial secretion [Not Recovered/Not Resolved]
  - Adrenocortical insufficiency acute [Recovered/Resolved]
  - Rhinovirus infection [Recovering/Resolving]

NARRATIVE: CASE EVENT DATE: 201703
